FAERS Safety Report 4934697-4 (Version None)
Quarter: 2006Q1

REPORT INFORMATION
  Report Type: 
  Country: None (occurrence: None)
  Receive Date: 20060307
  Receipt Date: 20051014
  Transmission Date: 20060701
  Serious: Yes (Hospitalization)
  Sender: FDA-Public Use
  Company Number: US-MERCK-0510USA07483

PATIENT
  Age: 65 Year
  Sex: Male
  Weight: 76 kg

DRUGS (13)
  1. VIOXX [Suspect]
     Indication: ARTHRALGIA
     Route: 048
     Dates: start: 20001227, end: 20040930
  2. VIOXX [Suspect]
     Indication: ARTHRITIS
     Route: 048
     Dates: start: 20001227, end: 20040930
  3. ALPHAGAN [Concomitant]
     Route: 065
  4. VEETIDS [Concomitant]
     Route: 065
  5. TYLENOL W/ CODEINE [Concomitant]
     Route: 065
     Dates: start: 20020319, end: 20020407
  6. BETIMOL [Concomitant]
     Route: 065
  7. VIAGRA [Concomitant]
     Indication: ERECTILE DYSFUNCTION
     Route: 065
  8. TRIACIN-C [Concomitant]
     Route: 065
  9. PILOCARPINE [Concomitant]
     Route: 065
  10. PROMETH VC WITH CODEINE [Concomitant]
     Route: 065
  11. TRAVATAN [Concomitant]
     Route: 065
  12. TYLENOL (CAPLET) [Concomitant]
     Route: 065
     Dates: start: 20020403
  13. ZYBAN [Concomitant]
     Indication: EX-SMOKER
     Route: 065

REACTIONS (5)
  - BLOOD CHOLESTEROL INCREASED [None]
  - CEREBROVASCULAR ACCIDENT [None]
  - DYSPEPSIA [None]
  - HYPERTENSION [None]
  - MYOCARDIAL INFARCTION [None]
